FAERS Safety Report 10207411 (Version 1)
Quarter: 2014Q2

REPORT INFORMATION
  Report Type: Spontaneous
  Country: US (occurrence: US)
  Receive Date: 20140530
  Receipt Date: 20140530
  Transmission Date: 20141212
  Serious: No
  Sender: FDA-Public Use
  Company Number: US-GLAXOSMITHKLINE-A1041760A

PATIENT
  Sex: Female

DRUGS (8)
  1. VENTOLIN [Suspect]
     Indication: WHEEZING
     Dosage: 2PUFF AT NIGHT
     Route: 055
     Dates: start: 2008
  2. ATENOLOL [Concomitant]
  3. LYRICA [Concomitant]
  4. VICODIN [Concomitant]
  5. IBUPROFEN [Concomitant]
  6. METFORMIN [Concomitant]
  7. VITAMINS [Concomitant]
  8. ALKA-SELTZER PLUS [Concomitant]

REACTIONS (2)
  - Drug ineffective [Not Recovered/Not Resolved]
  - Product quality issue [Unknown]
